FAERS Safety Report 24888468 (Version 1)
Quarter: 2025Q1

REPORT INFORMATION
  Report Type: Spontaneous
  Country: US (occurrence: US)
  Receive Date: 20250127
  Receipt Date: 20250127
  Transmission Date: 20250408
  Serious: Yes (Hospitalization, Other)
  Sender: COOPERSURGICAL
  Company Number: US-COOPERSURGICAL, INC.-2025CPS000321

PATIENT
  Age: 25 Year
  Sex: Female
  Weight: 61.224 kg

DRUGS (1)
  1. PARAGARD T 380A [Suspect]
     Active Substance: COPPER
     Route: 015
     Dates: start: 20070328, end: 20150723

REACTIONS (25)
  - Reproductive complication associated with device [Not Recovered/Not Resolved]
  - Injury [Not Recovered/Not Resolved]
  - Infertility female [Not Recovered/Not Resolved]
  - Uterine leiomyoma [Unknown]
  - Ovarian hyperstimulation syndrome [Recovered/Resolved]
  - Ectopic pregnancy [Recovered/Resolved]
  - Ruptured ectopic pregnancy [Recovered/Resolved]
  - Placenta praevia [Recovered/Resolved]
  - Caesarean section [Recovered/Resolved]
  - Laparotomy [Recovered/Resolved]
  - Salpingectomy [Recovered/Resolved]
  - Abortion spontaneous [Recovered/Resolved]
  - Device breakage [Recovered/Resolved]
  - Foreign body in reproductive tract [Recovered/Resolved]
  - Complication of device removal [Recovered/Resolved]
  - Embedded device [Recovered/Resolved]
  - Adnexal torsion [Recovered/Resolved]
  - Fear [Unknown]
  - Psychological trauma [Not Recovered/Not Resolved]
  - Anxiety [Recovered/Resolved]
  - Depression [Not Recovered/Not Resolved]
  - Psychiatric symptom [Not Recovered/Not Resolved]
  - Abdominal pain [Not Recovered/Not Resolved]
  - Abnormal uterine bleeding [Recovered/Resolved]
  - Pain [Recovered/Resolved]

NARRATIVE: CASE EVENT DATE: 20070301
